FAERS Safety Report 11479856 (Version 3)
Quarter: 2017Q1

REPORT INFORMATION
  Report Type: Spontaneous
  Country: US (occurrence: US)
  Receive Date: 20150909
  Receipt Date: 20170104
  Transmission Date: 20170428
  Serious: No
  Sender: FDA-Public Use
  Company Number: US-JAZZ-2014-US-014450

PATIENT
  Age: 61 Year
  Sex: Female

DRUGS (5)
  1. RESTORIL [Suspect]
     Active Substance: TEMAZEPAM
     Indication: SLEEP DISORDER
  2. TRAZODONE [Suspect]
     Active Substance: TRAZODONE HYDROCHLORIDE
     Indication: SLEEP DISORDER
  3. XYREM [Suspect]
     Active Substance: SODIUM OXYBATE
     Dosage: 2.25 G, BID
     Route: 048
     Dates: start: 201503
  4. NALTREXONE                         /00723402/ [Suspect]
     Active Substance: NALTREXONE
     Indication: PAIN
  5. XYREM [Suspect]
     Active Substance: SODIUM OXYBATE
     Indication: HYPERSOMNIA
     Dosage: 2.5 G, BID
     Route: 048
     Dates: start: 20141031, end: 201503

REACTIONS (12)
  - Headache [Recovered/Resolved]
  - Enuresis [Recovered/Resolved]
  - Nausea [Recovered/Resolved]
  - Colitis [Unknown]
  - Diarrhoea [Recovered/Resolved]
  - Vomiting [Recovered/Resolved]
  - Incoherent [Unknown]
  - Drug intolerance [Unknown]
  - Drug ineffective [Unknown]
  - Somnambulism [Unknown]
  - Fatigue [Unknown]
  - Pain [Unknown]

NARRATIVE: CASE EVENT DATE: 2014
